FAERS Safety Report 8520820-1 (Version None)
Quarter: 2012Q3

REPORT INFORMATION
  Report Type: 
  Country: None (occurrence: None)
  Receive Date: 20120719
  Receipt Date: 20120710
  Transmission Date: 20120928
  Serious: Yes (Death)
  Sender: FDA-Public Use
  Company Number: JP-PFIZER INC-2012042085

PATIENT
  Age: 74 Year
  Sex: Male
  Weight: 82 kg

DRUGS (7)
  1. ARGATROBAN [Suspect]
     Indication: EMBOLIC STROKE
     Dosage: 60 MG, UNK
     Route: 041
     Dates: start: 20110905, end: 20110905
  2. GRTPA [Concomitant]
     Indication: EMBOLIC STROKE
     Dosage: 28.536 MU, 1 IN 1 D
     Route: 042
     Dates: start: 20110905, end: 20110905
  3. ASPIRIN [Concomitant]
     Indication: EMBOLIC STROKE
     Dosage: 100 MG, UNK
     Route: 048
     Dates: start: 20110906, end: 20110911
  4. EDARAVONE [Suspect]
     Indication: EMBOLIC STROKE
     Dosage: 30 MG, 2X/DAY
     Route: 041
     Dates: start: 20110905, end: 20110905
  5. ASPIRIN [Concomitant]
     Dosage: 100 MG, UNK
     Route: 048
     Dates: start: 20110913, end: 20110917
  6. CATACLOT [Suspect]
     Indication: EMBOLIC STROKE
     Dosage: 80 MG, UNK
     Route: 041
     Dates: start: 20110905, end: 20110905
  7. LIVALO [Concomitant]
     Indication: HYPERLIPIDAEMIA
     Dosage: 2 MG, UNK
     Route: 048
     Dates: start: 20110906, end: 20110911

REACTIONS (1)
  - INTERSTITIAL LUNG DISEASE [None]
